FAERS Safety Report 9620854 (Version 2)
Quarter: 2013Q4

REPORT INFORMATION
  Report Type: Spontaneous
  Country: US (occurrence: US)
  Receive Date: 20131015
  Receipt Date: 20131015
  Transmission Date: 20140711
  Serious: No
  Sender: FDA-Public Use
  Company Number: US-TEVA-305453USA

PATIENT
  Sex: Male

DRUGS (2)
  1. CLARAVIS [Suspect]
     Indication: ACNE CYSTIC
     Dosage: 40 MILLIGRAM DAILY;
     Route: 048
     Dates: start: 20110913, end: 20110923
  2. CLARAVIS [Suspect]
     Dosage: 10 MILLIGRAM DAILY;
     Route: 048
     Dates: start: 20111112

REACTIONS (2)
  - Swelling face [Unknown]
  - Hypersensitivity [Unknown]
